FAERS Safety Report 19761856 (Version 1)
Quarter: 2021Q3

REPORT INFORMATION
  Report Type: Spontaneous
  Country: US (occurrence: US)
  Receive Date: 20210827
  Receipt Date: 20210827
  Transmission Date: 20211014
  Serious: Yes (Disabling, Other)
  Sender: FDA-Public Use
  Company Number: US-PURDUE-USA-2020-0276822

PATIENT

DRUGS (2)
  1. OXYCODONE HYDROCHLORIDE (SIMILAR TO NDA 22?272) [Suspect]
     Active Substance: OXYCODONE HYDROCHLORIDE
     Indication: PRODUCT USED FOR UNKNOWN INDICATION
     Dosage: UNKNOWN
     Route: 065
  2. PERCOCET                           /00446701/ [Suspect]
     Active Substance: ACETAMINOPHEN\OXYCODONE HYDROCHLORIDE\OXYCODONE TEREPHTHALATE
     Indication: PRODUCT USED FOR UNKNOWN INDICATION
     Dosage: UNKNOWN
     Route: 065

REACTIONS (17)
  - Physical disability [Unknown]
  - Drug withdrawal syndrome [Unknown]
  - Disturbance in attention [Unknown]
  - Nausea [Unknown]
  - Suicidal ideation [Unknown]
  - Insomnia [Unknown]
  - Memory impairment [Unknown]
  - Anger [Unknown]
  - Mental impairment [Unknown]
  - Depression [Unknown]
  - Drug dependence [Unknown]
  - Cognitive disorder [Unknown]
  - Impulse-control disorder [Unknown]
  - Headache [Unknown]
  - Vomiting [Unknown]
  - Limbal swelling [Unknown]
  - Diarrhoea [Unknown]
